FAERS Safety Report 7209443-4 (Version None)
Quarter: 2011Q1

REPORT INFORMATION
  Report Type: 
  Country: None (occurrence: None)
  Receive Date: 20110104
  Receipt Date: 20101223
  Transmission Date: 20110831
  Serious: Yes (Hospitalization)
  Sender: FDA-Public Use
  Company Number: FR-NAPPMUNDI-DEU-2010-0006832

PATIENT
  Sex: Male

DRUGS (16)
  1. SOLUPRED                           /00016201/ [Suspect]
     Indication: PREMEDICATION
     Dosage: 60 MG, DAILY
     Route: 048
     Dates: start: 20101024
  2. FARMORUBICINE [Suspect]
     Indication: PRODUCT USED FOR UNKNOWN INDICATION
     Dosage: 100 MG, DAILY
     Route: 042
     Dates: start: 20100905
  3. TAXOL [Suspect]
     Indication: PRODUCT USED FOR UNKNOWN INDICATION
     Dosage: 120 MG, DAILY
     Route: 042
     Dates: start: 20100905
  4. FORLAX [Concomitant]
  5. ATARAX [Suspect]
     Indication: PRODUCT USED FOR UNKNOWN INDICATION
     Dosage: UNK
     Route: 042
     Dates: start: 20101025, end: 20101026
  6. MOPRAL                             /00661201/ [Suspect]
     Indication: PRODUCT USED FOR UNKNOWN INDICATION
     Dosage: 20 MG, BID
     Route: 048
     Dates: start: 20101023, end: 20101025
  7. LYRICA [Suspect]
     Indication: PRODUCT USED FOR UNKNOWN INDICATION
     Dosage: 75 MG, BID
     Route: 048
     Dates: start: 20101023
  8. PROFENID [Suspect]
     Indication: PRODUCT USED FOR UNKNOWN INDICATION
     Dosage: 100 MG, TID
     Route: 048
     Dates: start: 20101023, end: 20101025
  9. SPASFON                            /00765801/ [Concomitant]
  10. HUMALOG [Concomitant]
  11. OXYNORM [Suspect]
     Indication: PAIN
     Dosage: 360 MG, DAILY
     Route: 048
     Dates: start: 20101023
  12. LOVENOX [Suspect]
     Indication: PRODUCT USED FOR UNKNOWN INDICATION
     Dosage: 0.4 ML, DAILY
     Route: 058
     Dates: start: 20101101, end: 20101107
  13. SOLUDACTONE [Concomitant]
  14. PERFALGAN [Concomitant]
  15. STILNOX [Concomitant]
  16. ABSTRAL [Concomitant]

REACTIONS (5)
  - RENAL FAILURE ACUTE [None]
  - WEIGHT INCREASED [None]
  - HYPERTENSION [None]
  - HYPOALBUMINAEMIA [None]
  - PROTEINURIA [None]
